FAERS Safety Report 20683892 (Version 1)
Quarter: 2022Q2

REPORT INFORMATION
  Report Type: Report from Study
  Country: PK (occurrence: PK)
  Receive Date: 20220407
  Receipt Date: 20220407
  Transmission Date: 20220721
  Serious: Yes (Other)
  Sender: FDA-Public Use
  Company Number: PK-NOVARTISPH-NVSC2021PK180543

PATIENT
  Age: 50 Year
  Sex: Male
  Weight: 70 kg

DRUGS (4)
  1. TASIGNA [Suspect]
     Active Substance: NILOTINIB
     Indication: Philadelphia positive chronic myeloid leukaemia
     Dosage: 200 MG (2+0+2)
     Route: 048
     Dates: start: 20190115, end: 20210727
  2. TASIGNA [Suspect]
     Active Substance: NILOTINIB
     Dosage: 200 MG (1+0+1)
     Route: 065
     Dates: start: 20210728
  3. TASIGNA [Suspect]
     Active Substance: NILOTINIB
     Dosage: 200 MG (1+0+1)
     Route: 048
     Dates: start: 20210115, end: 20210908
  4. TASIGNA [Suspect]
     Active Substance: NILOTINIB
     Dosage: 200 MG (1+0+1)
     Route: 048
     Dates: start: 20190115, end: 20220330

REACTIONS (4)
  - Thrombocytopenia [Not Recovered/Not Resolved]
  - Bicytopenia [Not Recovered/Not Resolved]
  - Leukocytosis [Not Recovered/Not Resolved]
  - Anaemia [Not Recovered/Not Resolved]

NARRATIVE: CASE EVENT DATE: 20210727
